FAERS Safety Report 21375632 (Version 1)
Quarter: 2022Q3

REPORT INFORMATION
  Report Type: Spontaneous
  Country: JP (occurrence: JP)
  Receive Date: 20220926
  Receipt Date: 20220926
  Transmission Date: 20221026
  Serious: Yes (Other)
  Sender: FDA-Public Use
  Company Number: JP-ELI_LILLY_AND_COMPANY-JP202209007063

PATIENT
  Sex: Female

DRUGS (1)
  1. VERZENIO [Suspect]
     Active Substance: ABEMACICLIB
     Indication: Breast cancer recurrent
     Route: 048

REACTIONS (9)
  - Suicidal ideation [Unknown]
  - Diarrhoea [Unknown]
  - Dehydration [Unknown]
  - Skin disorder [Not Recovered/Not Resolved]
  - Headache [Unknown]
  - Paraesthesia [Unknown]
  - Eating disorder [Unknown]
  - Nausea [Unknown]
  - Alopecia [Not Recovered/Not Resolved]

NARRATIVE: CASE EVENT DATE: 20220101
